FAERS Safety Report 9946764 (Version 1)
Quarter: 2014Q1

REPORT INFORMATION
  Report Type: Report from Study
  Country: US (occurrence: US)
  Receive Date: 20140303
  Receipt Date: 20140303
  Transmission Date: 20141002
  Serious: No
  Sender: FDA-Public Use
  Company Number: US-ABBVIE-13P-163-1062884-00

PATIENT
  Sex: Female
  Weight: 72.64 kg

DRUGS (1)
  1. HUMIRA [Suspect]
     Indication: PSORIASIS
     Dates: start: 20130214

REACTIONS (6)
  - Dizziness [Unknown]
  - Night sweats [Unknown]
  - Fatigue [Unknown]
  - Nodule [Unknown]
  - Nausea [Unknown]
  - Headache [Unknown]
